FAERS Safety Report 8103265-8 (Version None)
Quarter: 2012Q1

REPORT INFORMATION
  Report Type: 
  Country: None (occurrence: None)
  Receive Date: 20120201
  Receipt Date: 20120118
  Transmission Date: 20120608
  Serious: Yes (Hospitalization)
  Sender: FDA-Public Use
  Company Number: US-MYLANLABS-2011S1000185

PATIENT
  Age: 11 Year
  Sex: Male

DRUGS (45)
  1. DIAZEPAM [Suspect]
     Route: 048
     Dates: start: 20100702, end: 20100722
  2. MORPHINE [Suspect]
     Route: 041
     Dates: start: 20100621, end: 20100709
  3. SPIRONOLACTONE [Suspect]
     Route: 048
     Dates: start: 20100626, end: 20100706
  4. NITRAZEPAM [Suspect]
     Route: 041
     Dates: start: 20100617, end: 20100709
  5. MIDAZOLAM [Suspect]
     Route: 041
     Dates: start: 20100621, end: 20100621
  6. PIPERACILLIN SODIUM [Suspect]
     Route: 041
     Dates: start: 20100715, end: 20100716
  7. FENTANYL CITRATE [Suspect]
     Route: 041
     Dates: start: 20100621, end: 20100708
  8. HYALURONATE SODIUM [Suspect]
     Route: 047
     Dates: start: 20100723, end: 20100821
  9. FAMOTIDINE [Suspect]
     Route: 048
     Dates: start: 20100626, end: 20100715
  10. ACETAMINOPHEN [Suspect]
     Indication: PYREXIA
     Route: 048
     Dates: start: 20100627, end: 20100716
  11. FUROSEMIDE [Suspect]
     Route: 048
     Dates: start: 20100626, end: 20100706
  12. HYDROXYZINE HCL [Suspect]
     Route: 041
     Dates: start: 20100709, end: 20100709
  13. FLURBIPROFEN [Suspect]
     Route: 041
     Dates: start: 20100709, end: 20100709
  14. ACETAMINOPHEN [Suspect]
     Route: 054
     Dates: start: 20100630, end: 20100716
  15. DIAZEPAM [Suspect]
     Route: 048
     Dates: start: 20100622, end: 20100701
  16. CEFAZOLIN [Suspect]
     Route: 041
     Dates: start: 20100622, end: 20100624
  17. CEFTRIAXONE [Suspect]
     Indication: INFECTION
     Route: 041
     Dates: start: 20100630, end: 20100707
  18. EPINEPHRINE [Suspect]
     Route: 041
     Dates: start: 20100621, end: 20100621
  19. NICARDIPINE HYDROCHLORIDE [Suspect]
     Route: 041
     Dates: start: 20100622, end: 20100624
  20. OFLOXACIN [Suspect]
     Route: 047
     Dates: start: 20100728, end: 20100729
  21. ETIZOLAM [Suspect]
     Dosage: UNIT CONT:1
     Route: 048
     Dates: start: 20100701, end: 20100701
  22. PHENOBARBITAL TAB [Suspect]
     Route: 048
     Dates: start: 20100622, end: 20100709
  23. GLYCEROL 2.6% [Suspect]
     Indication: CONSTIPATION
     Route: 054
     Dates: start: 20100621
  24. BIOFERMIN T [Suspect]
     Route: 048
     Dates: start: 20100711, end: 20100718
  25. CALCIUM GLUCONATE [Suspect]
     Route: 041
     Dates: start: 20100621, end: 20100621
  26. ULTIVA [Suspect]
     Route: 042
     Dates: start: 20100621, end: 20100708
  27. AMPICILLIN [Suspect]
     Route: 041
     Dates: start: 20100715, end: 20100716
  28. STREPTOCOCCUS FAECALIS [Suspect]
     Route: 048
     Dates: start: 20100711, end: 20100718
  29. CLINDAMYCIN PHOSPHATE [Suspect]
     Route: 042
     Dates: start: 20100708, end: 20100710
  30. TRICLOFOS SODIUM [Suspect]
     Route: 048
     Dates: start: 20100628, end: 20100705
  31. OMEPRAZOLE [Suspect]
     Route: 041
     Dates: start: 20100716, end: 20100721
  32. HEPARIN SODIUM [Suspect]
     Route: 041
     Dates: start: 20100617
  33. GLYCEROL 2.6% [Suspect]
     Route: 041
     Dates: start: 20100617, end: 20100618
  34. ATROPINE SULFATE [Suspect]
     Route: 041
     Dates: start: 20100617, end: 20100622
  35. LIDOCAINE [Suspect]
     Route: 041
     Dates: start: 20100621, end: 20100709
  36. LANSOPRAZOLE [Suspect]
     Route: 048
     Dates: start: 20100628, end: 20100728
  37. FAMOTIDINE [Suspect]
     Route: 041
     Dates: start: 20100617, end: 20100626
  38. RISPERIDONE [Suspect]
     Route: 048
     Dates: start: 20100702, end: 20100714
  39. LACTOBACILLUS CASEI [Suspect]
     Route: 048
     Dates: start: 20100702, end: 20100709
  40. SODIUM PICOSULFATE [Suspect]
     Route: 048
     Dates: start: 20100620, end: 20100620
  41. HEPARIN SODIUM [Suspect]
     Route: 041
     Dates: start: 20100808, end: 20100812
  42. DEXAMETHASONE [Suspect]
     Route: 042
     Dates: start: 20100617, end: 20100622
  43. DEXMEDETOMIDINE HYDROCHLORIDE [Suspect]
     Route: 041
     Dates: start: 20100704, end: 20100705
  44. ROCURONIUM BROMIDE [Suspect]
     Route: 041
     Dates: start: 20100617, end: 20100706
  45. DEXPANTHENOL [Suspect]
     Route: 041
     Dates: start: 20100604, end: 20100705

REACTIONS (2)
  - DRUG RASH WITH EOSINOPHILIA AND SYSTEMIC SYMPTOMS [None]
  - LYMPHOCYTE STIMULATION TEST POSITIVE [None]
